FAERS Safety Report 8490722-8 (Version None)
Quarter: 2012Q3

REPORT INFORMATION
  Report Type: 
  Country: None (occurrence: None)
  Receive Date: 20120706
  Receipt Date: 20120626
  Transmission Date: 20120928
  Serious: Yes (Hospitalization)
  Sender: FDA-Public Use
  Company Number: NL-AMGEN-NLDSP2012041090

PATIENT
  Age: 65 Year
  Sex: Female
  Weight: 70 kg

DRUGS (5)
  1. DOXORUBICIN HCL [Suspect]
     Indication: MALIGNANT LYMPHOID NEOPLASM
     Dosage: 88 MG, UNK
     Route: 042
     Dates: start: 20120525
  2. VINCRISTINE [Suspect]
     Indication: MALIGNANT LYMPHOID NEOPLASM
     Dosage: 2 MG, UNK
     Route: 042
     Dates: start: 20120525
  3. NEULASTA [Suspect]
     Indication: MALIGNANT LYMPHOID NEOPLASM
     Dosage: 6 MG, UNK
     Route: 058
     Dates: start: 20120526
  4. RITUXIMAB [Suspect]
     Indication: MALIGNANT LYMPHOID NEOPLASM
     Dosage: 660 MG, UNK
     Route: 042
     Dates: start: 20120525
  5. CYCLOPHOSPHAMIDE [Suspect]
     Indication: MALIGNANT LYMPHOID NEOPLASM
     Dosage: 1310 MG, UNK
     Route: 042
     Dates: start: 20120525

REACTIONS (1)
  - ANAEMIA [None]
